FAERS Safety Report 8070501-6 (Version None)
Quarter: 2011Q4

REPORT INFORMATION
  Report Type: 
  Country: None (occurrence: None)
  Receive Date: 20111221
  Receipt Date: 20111004
  Transmission Date: 20120403
  Serious: Yes (Other)
  Sender: FDA-Public Use
  Company Number: PHEH2011US01429

PATIENT
  Age: 82 Year
  Sex: Female
  Weight: 49.4 kg

DRUGS (3)
  1. EXJADE [Suspect]
     Indication: MYELODYSPLASTIC SYNDROME
     Dosage: 750 MG, QD, ORAL
     Route: 048
     Dates: start: 20110721, end: 20110823
  2. EXJADE [Suspect]
     Indication: IRON OVERLOAD
     Dosage: 750 MG, QD, ORAL
     Route: 048
     Dates: start: 20110721, end: 20110823
  3. DESFERAL [Concomitant]

REACTIONS (6)
  - ABDOMINAL PAIN UPPER [None]
  - NAUSEA [None]
  - EXCORIATION [None]
  - ABDOMINAL PAIN [None]
  - DIARRHOEA [None]
  - RECTAL HAEMORRHAGE [None]
